FAERS Safety Report 7621707-9 (Version None)
Quarter: 2011Q3

REPORT INFORMATION
  Report Type: 
  Country: None (occurrence: None)
  Receive Date: 20110719
  Receipt Date: 20110706
  Transmission Date: 20111222
  Serious: Yes (Other)
  Sender: FDA-Public Use
  Company Number: US-AMGEN-USASP2011032127

PATIENT
  Age: 56 Year
  Sex: Female
  Weight: 80.28 kg

DRUGS (3)
  1. LISINOPRIL AND HYDROCHLOROTHIAZIDE [Concomitant]
  2. METHOTREXATE [Concomitant]
  3. ENBREL [Suspect]
     Indication: RHEUMATOID ARTHRITIS
     Dosage: 50 MG, QWK
     Dates: start: 20000301

REACTIONS (12)
  - PANCYTOPENIA [None]
  - MUSCULOSKELETAL STIFFNESS [None]
  - PLATELET COUNT DECREASED [None]
  - ANISOCYTOSIS [None]
  - WEIGHT DECREASED [None]
  - SYNOVITIS [None]
  - PAIN [None]
  - LEUKOPENIA [None]
  - BLOOD LACTATE DEHYDROGENASE INCREASED [None]
  - NORMOCHROMIC NORMOCYTIC ANAEMIA [None]
  - CONTUSION [None]
  - GAMMA-GLUTAMYLTRANSFERASE INCREASED [None]
